FAERS Safety Report 21202226 (Version 2)
Quarter: 2023Q1

REPORT INFORMATION
  Report Type: Spontaneous
  Country: GB (occurrence: GB)
  Receive Date: 20220811
  Receipt Date: 20230214
  Transmission Date: 20230418
  Serious: Yes (Other)
  Sender: FDA-Public Use
  Company Number: GB-AMGEN-GBRSP2022135023

PATIENT
  Sex: Male

DRUGS (5)
  1. ADALIMUMAB [Suspect]
     Active Substance: ADALIMUMAB
     Indication: Crohn^s disease
     Dosage: UNK
     Route: 065
     Dates: start: 201707
  2. ADALIMUMAB [Suspect]
     Active Substance: ADALIMUMAB
     Indication: Off label use
     Dosage: UNK, Q2WK
     Route: 058
     Dates: start: 202102
  3. SULFASALAZINE [Concomitant]
     Active Substance: SULFASALAZINE
  4. PREDNISOLONE [Concomitant]
     Active Substance: PREDNISOLONE
  5. AZATHIOPRINE [Concomitant]
     Active Substance: AZATHIOPRINE

REACTIONS (6)
  - Crohn^s disease [Unknown]
  - School refusal [Unknown]
  - Diarrhoea [Unknown]
  - Weight gain poor [Unknown]
  - Somatic symptom disorder [Unknown]
  - Hyperaesthesia [Unknown]
